FAERS Safety Report 20603812 (Version 1)
Quarter: 2022Q1

REPORT INFORMATION
  Report Type: Spontaneous
  Country: US (occurrence: None)
  Receive Date: 20220316
  Receipt Date: 20220316
  Transmission Date: 20220423
  Serious: No
  Sender: FDA-Public Use
  Company Number: None

PATIENT
  Sex: Male

DRUGS (2)
  1. DUPIXENT [Suspect]
     Active Substance: DUPILUMAB
     Indication: Sinus polyp degeneration
     Dosage: FREQUENCY : EVERY OTHER WEEK;?
     Route: 030
     Dates: start: 202203
  2. DUPIXENT [Suspect]
     Active Substance: DUPILUMAB
     Indication: Chronic sinusitis

REACTIONS (3)
  - Injection site pain [None]
  - Incorrect dose administered [None]
  - Wrong technique in device usage process [None]
